FAERS Safety Report 4865415-6 (Version None)
Quarter: 2005Q4

REPORT INFORMATION
  Report Type: 
  Country: None (occurrence: None)
  Receive Date: 20051221
  Receipt Date: 20051221
  Transmission Date: 20060501
  Serious: Yes (Hospitalization)
  Sender: FDA-Public Use
  Company Number: None

PATIENT
  Age: 77 Year
  Sex: Male

DRUGS (15)
  1. COUMADIN [Suspect]
  2. ADVAIR DISKUS 250/50 [Concomitant]
  3. COMBIVENT [Concomitant]
  4. NASACORT [Concomitant]
  5. LASIX [Concomitant]
  6. PRILOSEC [Concomitant]
  7. ALLEGRA [Concomitant]
  8. LIPITOR [Concomitant]
  9. FLOMAX [Concomitant]
  10. ZAROXOLYN [Concomitant]
  11. TOPROL-XL [Concomitant]
  12. PROSCAR [Concomitant]
  13. ZYLOPRIM [Concomitant]
  14. POTASSIUM CHLORIDE [Concomitant]
  15. SPINVCE [Concomitant]

REACTIONS (4)
  - ASTHENIA [None]
  - EPISTAXIS [None]
  - HAEMOPTYSIS [None]
  - INTERNATIONAL NORMALISED RATIO INCREASED [None]
